FAERS Safety Report 5598873-2 (Version None)
Quarter: 2008Q1

REPORT INFORMATION
  Report Type: 
  Country: None (occurrence: None)
  Receive Date: 20080122
  Receipt Date: 20080116
  Transmission Date: 20080703
  Serious: Yes (Hospitalization, Other)
  Sender: FDA-Public Use
  Company Number: US-BRISTOL-MYERS SQUIBB COMPANY-13986393

PATIENT
  Age: 53 Year
  Sex: Female

DRUGS (9)
  1. ABATACEPT [Suspect]
     Indication: RHEUMATOID ARTHRITIS
     Dates: start: 20040329, end: 20070924
  2. METHOTREXATE [Suspect]
     Indication: RHEUMATOID ARTHRITIS
     Route: 048
     Dates: start: 20030627, end: 20071115
  3. ORENCIA [Concomitant]
     Route: 042
     Dates: start: 20070924, end: 20071022
  4. PERCOCET TABS 5 MG/325 MG [Concomitant]
     Dosage: 2 DOSAGE FORM=2 PILLS
     Route: 048
     Dates: start: 20030627
  5. ADVAIR DISKUS 100/50 [Concomitant]
     Dosage: 250/50 MG; ROUTE 10; USE:OTHER 2 DOSAGE FORM=2 PUFF
     Route: 055
     Dates: start: 20041020
  6. CELEXA [Concomitant]
     Dosage: ROUTE: 3; AND USE: 98
     Route: 048
     Dates: start: 20030516
  7. CELEBREX [Concomitant]
     Dosage: ROUTE: 3; USE:98
     Route: 048
     Dates: start: 20020620, end: 20071214
  8. PREDNISONE [Concomitant]
     Dosage: ROUTE: 3; USE: 98. 20MG QD 15-DEC-07 AND ONGOING
     Route: 048
     Dates: start: 20010622, end: 20071214
  9. FOLIC ACID [Concomitant]
     Dosage: ROUTE:3; USE: 98
     Route: 048
     Dates: start: 20021203

REACTIONS (2)
  - ABDOMINAL PAIN [None]
  - BILE DUCT CANCER [None]
